FAERS Safety Report 9531235 (Version 1)
Quarter: 2013Q3

REPORT INFORMATION
  Report Type: Spontaneous
  Country: TW (occurrence: None)
  Receive Date: 20130916
  Receipt Date: 20130916
  Transmission Date: 20140515
  Serious: Yes (Death, Other)
  Sender: FDA-Public Use
  Company Number: 2013080195

PATIENT
  Sex: Female

DRUGS (1)
  1. MESALAMINE [Suspect]
     Indication: CROHN^S DISEASE
     Route: 064

REACTIONS (5)
  - Cerebral haemorrhage [None]
  - Bladder dilatation [None]
  - Anaemia [None]
  - Foetal death [None]
  - Maternal drugs affecting foetus [None]
